FAERS Safety Report 6898796-2 (Version None)
Quarter: 2010Q3

REPORT INFORMATION
  Report Type: 
  Country: None (occurrence: None)
  Receive Date: 20100802
  Receipt Date: 20071121
  Transmission Date: 20110219
  Serious: Yes (Other)
  Sender: FDA-Public Use
  Company Number: US-PFIZER INC-2007096190

PATIENT
  Sex: Female
  Weight: 65.909 kg

DRUGS (11)
  1. LYRICA [Suspect]
     Indication: NEUROPATHY PERIPHERAL
     Dates: start: 20050601
  2. BETASERON [Concomitant]
  3. ALLEGRA [Concomitant]
  4. SYNTHROID [Concomitant]
  5. ACYCLOVIR [Concomitant]
  6. CRESTOR [Concomitant]
  7. TRICOR [Concomitant]
  8. AMITRIPTYLINE HYDROCHLORIDE [Concomitant]
  9. ZANAFLEX [Concomitant]
  10. ORTHO TRI-CYCLEN [Concomitant]
  11. ELAVIL [Concomitant]

REACTIONS (9)
  - DIARRHOEA [None]
  - FEELING COLD [None]
  - FEELING HOT [None]
  - INSOMNIA [None]
  - NAUSEA [None]
  - NEURALGIA [None]
  - OEDEMA PERIPHERAL [None]
  - WEIGHT INCREASED [None]
  - WITHDRAWAL SYNDROME [None]
